FAERS Safety Report 20658691 (Version 1)
Quarter: 2022Q1

REPORT INFORMATION
  Report Type: Spontaneous
  Country: US (occurrence: None)
  Receive Date: 20220331
  Receipt Date: 20220331
  Transmission Date: 20220423
  Serious: Yes (Hospitalization)
  Sender: FDA-Public Use
  Company Number: None

PATIENT
  Age: 22 Year
  Sex: Male
  Weight: 70.9 kg

DRUGS (10)
  1. CYCLOPHOSPHAMIDE [Suspect]
     Active Substance: CYCLOPHOSPHAMIDE
     Dates: end: 20220221
  2. CYTARABINE [Suspect]
     Active Substance: CYTARABINE
     Dates: end: 20220303
  3. DEXAMETHASONE [Suspect]
     Active Substance: DEXAMETHASONE
     Dates: end: 20220123
  4. ZINECARD [Suspect]
     Active Substance: DEXRAZOXANE HYDROCHLORIDE
     Dates: end: 20220131
  5. DOXORUBICIN HYDROCHLORIDE [Suspect]
     Active Substance: DOXORUBICIN HYDROCHLORIDE
     Dates: end: 20220131
  6. METHOTREXATE [Suspect]
     Active Substance: METHOTREXATE
     Indication: Product used for unknown indication
     Dates: end: 20220228
  7. PEGASPARGASE [Suspect]
     Active Substance: PEGASPARGASE
     Dosage: 3750 IU;?
     Dates: end: 20220110
  8. GLEEVEC [Suspect]
     Active Substance: IMATINIB MESYLATE
     Dates: end: 20220316
  9. THIOGUANINE ANHYDROUS [Suspect]
     Active Substance: THIOGUANINE ANHYDROUS
     Dates: end: 20220307
  10. VINCRISTINE SULFATE [Suspect]
     Active Substance: VINCRISTINE SULFATE
     Dates: end: 20220131

REACTIONS (13)
  - Cardio-respiratory arrest [None]
  - Left ventricular dysfunction [None]
  - Pulse absent [None]
  - Unresponsive to stimuli [None]
  - Febrile neutropenia [None]
  - Hypotension [None]
  - Blood culture positive [None]
  - Stomatococcal infection [None]
  - Mucosal inflammation [None]
  - Abdominal abscess [None]
  - Bradycardia [None]
  - Ventricular fibrillation [None]
  - Tachycardia [None]

NARRATIVE: CASE EVENT DATE: 20220328
